FAERS Safety Report 10362154 (Version 1)
Quarter: 2014Q1

REPORT INFORMATION
  Report Type: Spontaneous
  Country: US (occurrence: None)
  Receive Date: 20140306
  Receipt Date: 20140306
  Transmission Date: 20141002
  Serious: Yes (Other)
  Sender: FDA-Public Use
  Company Number: 163-21880-13043763

PATIENT
  Age: 81 Year
  Sex: Male
  Weight: 88.45 kg

DRUGS (22)
  1. REVLIMID (LENALIDOMIDE) (5 MILLIGRAM, CAPSULES) [Suspect]
     Indication: PLASMA CELL MYELOMA
     Route: 048
     Dates: start: 20130315
  2. ALLOPURINOL (TALBETS) [Concomitant]
  3. CARVEDIOLOL (TABLETS) [Concomitant]
  4. CLINDAMYCIN HCI (CLINDAMYCIN HYDROCHLORIDE) (300 MILLIGRAM, CAPSULES) [Concomitant]
  5. DEXAMETHASONE (4 MILLIGRAM, TABLETS) [Concomitant]
  6. DIPHENOXYLATE-ATROPINE (DIPHENOXYLATE W/ATROPINE SULFATE) (TABLETS) [Concomitant]
  7. FINASTERIDE (TABLETS) [Concomitant]
  8. FUROSEMIDE (40 MILLIGRAM, TABLETS) [Concomitant]
  9. HYDROCODONE-ACETAMINOPHE (VICODIN) (TABLETS) [Concomitant]
  10. IMODIUM A-D (LOPERAMIDE HYDROCHLORIDE) (TABLETS) [Concomitant]
  11. LEVOTHYROXINE SODIUM (TABLETS) [Concomitant]
  12. NITROSTAT (GLYCERYL TRINITRATE) (TABLETS) [Concomitant]
  13. OMEPRAZOLE (TABLETS) [Concomitant]
  14. PROVENTIL HFA (SALBUTAMOL (AEROSOL FOR INHALATION) [Concomitant]
  15. SIMVASTATIN (TABLETS) [Concomitant]
  16. TAMSULOSIN HCL (TAMSULOSIN HYDROCHLORIDE) (CAPSULES) [Concomitant]
  17. TEMAZEPAM (CAPSULES) [Concomitant]
  18. TRIAMCINOLONE ACETONIDE (CREAM) [Concomitant]
  19. VITAMIN D (ERGOCALCIFEROL) (TABLETS) [Concomitant]
  20. WARFARIN SODIUM (2 MILLIGRAM, TABLETS) [Concomitant]
  21. VITAMIN B12 (CYANOCOBALAMIN) (UNKNOWN) [Concomitant]
  22. OXYCODONE HCL (OXYCODONE HYDROCHLORIDE) (TABLETS) [Concomitant]

REACTIONS (5)
  - Full blood count decreased [None]
  - Anaemia [None]
  - Fatigue [None]
  - Neutrophil count decreased [None]
  - White blood cell count decreased [None]
